FAERS Safety Report 5328628-5 (Version None)
Quarter: 2007Q2

REPORT INFORMATION
  Report Type: 
  Country: None (occurrence: None)
  Receive Date: 20070514
  Receipt Date: 20070427
  Transmission Date: 20071010
  Serious: Yes (Other)
  Sender: FDA-Public Use
  Company Number: 8023140

PATIENT
  Sex: Female
  Weight: 2.58 kg

DRUGS (7)
  1. LEVETIRACETAM [Suspect]
     Indication: EPILEPSY
     Dosage: 2000 MG/D
     Dates: start: 20040425, end: 20040101
  2. LEVETIRACETAM [Suspect]
     Indication: EPILEPSY
     Dosage: 2500 MG /D
     Dates: start: 20040101, end: 20041231
  3. CARBAMAZEPINE [Concomitant]
  4. CARBAMAZEPINE [Concomitant]
  5. DIAZEPAM [Concomitant]
  6. DIAZEPAM [Concomitant]
  7. FOLIC ACID [Concomitant]

REACTIONS (2)
  - DRUG EXPOSURE DURING PREGNANCY [None]
  - PREMATURE BABY [None]
